FAERS Safety Report 14526883 (Version 1)
Quarter: 2018Q1

REPORT INFORMATION
  Report Type: Spontaneous
  Country: US (occurrence: US)
  Receive Date: 20180212
  Receipt Date: 20180212
  Transmission Date: 20180509
  Serious: Yes (Death)
  Sender: FDA-Public Use
  Company Number: None

PATIENT
  Sex: Male
  Weight: 94.5 kg

DRUGS (2)
  1. IMODIUM [Suspect]
     Active Substance: LOPERAMIDE HYDROCHLORIDE
  2. EQUATE ANTI DIARRHEAL [Suspect]
     Active Substance: LOPERAMIDE HYDROCHLORIDE
     Dosage: ?          QUANTITY:120 SOFTGELS;?
     Route: 048
     Dates: start: 20180202, end: 20180204

REACTIONS (6)
  - Fall [None]
  - Abnormal behaviour [None]
  - Respiratory arrest [None]
  - Incorrect dose administered [None]
  - Unresponsive to stimuli [None]
  - Contusion [None]

NARRATIVE: CASE EVENT DATE: 20180205
